FAERS Safety Report 25071628 (Version 1)
Quarter: 2025Q1

REPORT INFORMATION
  Report Type: Spontaneous
  Country: US (occurrence: None)
  Receive Date: 20250313
  Receipt Date: 20250313
  Transmission Date: 20250408
  Serious: No
  Sender: Alvotech
  Company Number: US-ALVOTECHPMS-2025-ALVOTECHPMS-003390

PATIENT

DRUGS (1)
  1. ADALIMUMAB-RYVK [Suspect]
     Active Substance: ADALIMUMAB-RYVK
     Indication: Product used for unknown indication
     Route: 058

REACTIONS (3)
  - Injection site bruising [Unknown]
  - Injection site haemorrhage [Unknown]
  - Injection site pain [Unknown]
